FAERS Safety Report 5629863-9 (Version None)
Quarter: 2008Q1

REPORT INFORMATION
  Report Type: 
  Country: None (occurrence: None)
  Receive Date: 20080218
  Receipt Date: 20080211
  Transmission Date: 20080703
  Serious: Yes (Hospitalization, Other)
  Sender: FDA-Public Use
  Company Number: US-ASTRAZENECA-2007UW01960

PATIENT
  Age: 53 Year
  Sex: Male
  Weight: 90.9 kg

DRUGS (25)
  1. SEROQUEL [Suspect]
     Indication: BIPOLAR DISORDER
     Dosage: 25 TO 200 MG
     Route: 048
     Dates: start: 20050621, end: 20050801
  2. RISPERDAL [Concomitant]
     Dosage: 0.5-1MG
     Dates: start: 20060601
  3. LORAZEPAM [Concomitant]
     Dates: start: 20050714
  4. FLUOXETINE [Concomitant]
     Dates: start: 20050714
  5. MEPERIDINE [Concomitant]
     Dates: start: 20050812
  6. LAMICTAL [Concomitant]
     Dates: start: 20050816
  7. LAMICTAL [Concomitant]
     Dates: start: 20051109
  8. FEXOFENADINE [Concomitant]
     Dates: start: 20060113
  9. NASACORT AQ [Concomitant]
     Dosage: 120 SPRAY 16.5 GM
     Dates: start: 20051006
  10. ACETAMINOPHEN AND HYDROCODONE BITARTRATE [Concomitant]
     Dosage: 10 MG/500 MG
     Dates: start: 20060208
  11. ACETAMINOPHEN AND HYDROCODONE BITARTRATE [Concomitant]
     Dosage: 7.5 MG/325 MG
     Dates: start: 20051213
  12. ACETAMINOPHEN AND HYDROCODONE BITARTRATE [Concomitant]
     Dosage: 5 MG/500 MG
     Dates: start: 20051223
  13. ACETAMINOPHEN AND HYDROCODONE BITARTRATE [Concomitant]
     Dosage: 10 MG/325 MG
     Dates: start: 20051115
  14. CEPHALEXIN [Concomitant]
  15. PROPOXYPHENE HCL [Concomitant]
  16. ACTOS [Concomitant]
     Dates: start: 20060113
  17. ACTOS [Concomitant]
     Dates: start: 20060126
  18. TRAMADOL HCL [Concomitant]
     Dates: start: 20060113
  19. METFORMIN HCL [Concomitant]
     Dates: start: 20060215
  20. PRAVACHOL [Concomitant]
     Dates: start: 20060215
  21. ATIVAN [Concomitant]
     Indication: INSOMNIA
     Dosage: ONE TO TWO AT BEDTIME
     Route: 048
     Dates: start: 20050815
  22. PROZAC [Concomitant]
     Route: 048
     Dates: start: 20050816
  23. PROZAC [Concomitant]
     Route: 048
  24. VIAGRA [Concomitant]
  25. ABILIFY [Concomitant]
     Dates: start: 20060501, end: 20060601

REACTIONS (11)
  - ACCIDENTAL OVERDOSE [None]
  - ANXIETY [None]
  - DEPRESSED MOOD [None]
  - HYPERLIPIDAEMIA [None]
  - INSOMNIA [None]
  - IRRITABILITY [None]
  - OVERWEIGHT [None]
  - SEPTOPLASTY [None]
  - SHOULDER ARTHROPLASTY [None]
  - SUICIDE ATTEMPT [None]
  - TYPE 2 DIABETES MELLITUS [None]
